FAERS Safety Report 4490936-8 (Version None)
Quarter: 2004Q4

REPORT INFORMATION
  Report Type: 
  Country: None (occurrence: None)
  Receive Date: 20041027
  Receipt Date: 20041014
  Transmission Date: 20050328
  Serious: Yes (Other)
  Sender: FDA-Public Use
  Company Number: 2004078273

PATIENT
  Age: 40 Year
  Sex: Male

DRUGS (1)
  1. NICORETTE [Suspect]
     Indication: SMOKING CESSATION THERAPY
     Dosage: 48-57 TIMES PER DAY, NASAL
     Route: 048
     Dates: start: 20040901

REACTIONS (3)
  - DRUG DEPENDENCE [None]
  - HEADACHE [None]
  - HICCUPS [None]
